FAERS Safety Report 8269683-2 (Version None)
Quarter: 2012Q2

REPORT INFORMATION
  Report Type: 
  Country: None (occurrence: None)
  Receive Date: 20120405
  Receipt Date: 20120322
  Transmission Date: 20120825
  Serious: Yes (Congenital Anomaly, Other)
  Sender: FDA-Public Use
  Company Number: 20120175

PATIENT

DRUGS (6)
  1. LAMOTRGINE [Suspect]
     Indication: EPILEPSY
     Dosage: FREQUENCY NOT SPECIFIED
  2. LAMOTRGINE [Suspect]
     Indication: AFFECTIVE DISORDER
     Dosage: FREQUENCY NOT SPECIFIED
  3. TOPIRAMATE [Suspect]
     Indication: EPILEPSY
     Dosage: AT MOTHER'S LMP
  4. TOPIRAMATE [Suspect]
     Indication: AFFECTIVE DISORDER
     Dosage: AT MOTHER'S LMP
  5. PHENYTOIN SODIUM [Suspect]
     Indication: EPILEPSY
  6. PHENYTOIN SODIUM [Suspect]
     Indication: AFFECTIVE DISORDER

REACTIONS (2)
  - CONGENITAL SPINAL CORD ANOMALY [None]
  - MATERNAL DRUGS AFFECTING FOETUS [None]
